FAERS Safety Report 7030176-1 (Version None)
Quarter: 2010Q4

REPORT INFORMATION
  Report Type: 
  Country: None (occurrence: None)
  Receive Date: 20101006
  Receipt Date: 20100923
  Transmission Date: 20110411
  Serious: Yes (Hospitalization)
  Sender: FDA-Public Use
  Company Number: US-ELI_LILLY_AND_COMPANY-US201005007018

PATIENT
  Sex: Female
  Weight: 81.633 kg

DRUGS (10)
  1. FORTEO [Suspect]
     Indication: OSTEOPOROSIS
     Dosage: 20 UG, DAILY (1/D)
  2. WARFARIN [Concomitant]
     Indication: ATRIAL FIBRILLATION
  3. PREDNISONE [Concomitant]
     Indication: PSORIATIC ARTHROPATHY
     Dosage: 10 MG, DAILY (1/D)
  4. SINEMET [Concomitant]
     Indication: PARKINSON'S DISEASE
     Dosage: UNK, 3/D
  5. PRED FORTE [Concomitant]
     Indication: FUCHS' SYNDROME
     Dosage: 1 %, DAILY (1/D)
  6. VITAMIN D [Concomitant]
     Indication: OSTEOPOROSIS
     Dosage: 50000 IU, WEEKLY (1/W)
  7. CALCIUM WITH VITAMIN D /00944201/ [Concomitant]
     Dosage: UNK, 2/D
  8. MAGNESIUM OXIDE [Concomitant]
     Indication: BLOOD MAGNESIUM DECREASED
     Dosage: 400 MG, DAILY (1/D)
  9. METOPROLOL [Concomitant]
  10. ASPIRIN [Concomitant]

REACTIONS (11)
  - ASTHENIA [None]
  - CANDIDIASIS [None]
  - CHOLECYSTITIS [None]
  - CLOSTRIDIUM DIFFICILE COLITIS [None]
  - DEHYDRATION [None]
  - DIARRHOEA [None]
  - DRUG ADMINISTERED AT INAPPROPRIATE SITE [None]
  - GAIT DISTURBANCE [None]
  - PARANOIA [None]
  - URINARY TRACT INFECTION [None]
  - WOUND INFECTION PSEUDOMONAS [None]
